FAERS Safety Report 5499568-6 (Version None)
Quarter: 2007Q4

REPORT INFORMATION
  Report Type: 
  Country: None (occurrence: None)
  Receive Date: 20071026
  Receipt Date: 20071018
  Transmission Date: 20080405
  Serious: Yes (Hospitalization)
  Sender: FDA-Public Use
  Company Number: US-ELI_LILLY_AND_COMPANY-US200709002035

PATIENT
  Sex: Female

DRUGS (1)
  1. HUMALOG [Suspect]
     Dosage: UNK, UNK

REACTIONS (3)
  - BLOOD GLUCOSE INCREASED [None]
  - CYSTIC FIBROSIS [None]
  - RESPIRATORY DISORDER [None]
